FAERS Safety Report 4766607-7 (Version None)
Quarter: 2005Q3

REPORT INFORMATION
  Report Type: 
  Country: None (occurrence: None)
  Receive Date: 20050908
  Receipt Date: 20050829
  Transmission Date: 20060218
  Serious: Yes (Other)
  Sender: FDA-Public Use
  Company Number: 2005121200

PATIENT
  Age: 60 Year
  Sex: Female
  Weight: 101.6057 kg

DRUGS (7)
  1. NEURONTIN [Suspect]
     Indication: BIPOLAR DISORDER
     Dosage: 1200 MG (400 MG, 3 IN 1 D), ORAL
     Route: 048
     Dates: start: 20010101
  2. NEURONTIN [Suspect]
     Indication: BIPOLAR I DISORDER
     Dosage: 1200 MG (400 MG, 3 IN 1 D), ORAL
     Route: 048
     Dates: start: 20010101
  3. VERAPAMIL [Suspect]
     Indication: PALPITATIONS
     Dosage: 180 MG (1 D)
     Dates: start: 20020101
  4. LEXAPRO [Concomitant]
  5. LESCOL XL [Concomitant]
  6. ALLERGY MEDICATION (ALLERGY MEDICATION) [Concomitant]
  7. DEPAKOTE [Concomitant]

REACTIONS (3)
  - CARDIAC FLUTTER [None]
  - PARKINSON'S DISEASE [None]
  - TRANSIENT ISCHAEMIC ATTACK [None]
